FAERS Safety Report 5571179-3 (Version None)
Quarter: 2007Q4

REPORT INFORMATION
  Report Type: 
  Country: None (occurrence: None)
  Receive Date: 20071221
  Receipt Date: 20061227
  Transmission Date: 20080405
  Serious: No
  Sender: FDA-Public Use
  Company Number: A0632623A

PATIENT
  Age: 49 Year
  Sex: Female

DRUGS (8)
  1. FLUTICASONE PROPIONATE [Suspect]
     Dosage: 4SPR PER DAY
     Route: 045
     Dates: start: 20060901, end: 20061101
  2. LOTENSIN [Concomitant]
  3. LOPRESSOR [Concomitant]
  4. NORVASC [Concomitant]
  5. FEMHRT [Concomitant]
  6. ASTELIN [Concomitant]
  7. LORATADINE [Concomitant]
  8. PEPCID [Concomitant]

REACTIONS (3)
  - DRUG INEFFECTIVE [None]
  - NASAL CONGESTION [None]
  - NASAL DISCOMFORT [None]
